FAERS Safety Report 10348775 (Version 1)
Quarter: 2014Q3

REPORT INFORMATION
  Report Type: Spontaneous
  Country: US (occurrence: US)
  Receive Date: 20140729
  Receipt Date: 20140729
  Transmission Date: 20150326
  Serious: No
  Sender: FDA-Public Use
  Company Number: US-PFIZER INC-2014211413

PATIENT
  Age: 62 Year
  Sex: Male
  Weight: 73.92 kg

DRUGS (3)
  1. DEPO-MEDROL [Suspect]
     Active Substance: METHYLPREDNISOLONE ACETATE
     Indication: NEURALGIA
     Dosage: UNK
     Dates: start: 20140722
  2. BUPIVACAINE [Suspect]
     Active Substance: BUPIVACAINE
     Indication: NEURALGIA
     Dosage: STRENGTH OF 0.25% INJECTION
     Dates: start: 20140722
  3. LIDOCAINE HCL [Suspect]
     Active Substance: LIDOCAINE HYDROCHLORIDE
     Indication: NEURALGIA
     Dosage: UNK
     Dates: start: 20140722

REACTIONS (1)
  - Hypersensitivity [Not Recovered/Not Resolved]

NARRATIVE: CASE EVENT DATE: 201407
